FAERS Safety Report 17729927 (Version 2)
Quarter: 2020Q2

REPORT INFORMATION
  Report Type: Spontaneous
  Country: AU (occurrence: AU)
  Receive Date: 20200430
  Receipt Date: 20200504
  Transmission Date: 20200714
  Serious: Yes (Other)
  Sender: FDA-Public Use
  Company Number: NVSC2020AU114878

PATIENT
  Sex: Female

DRUGS (8)
  1. EVEROLIMUS. [Suspect]
     Active Substance: EVEROLIMUS
     Indication: NEUROENDOCRINE TUMOUR
     Dosage: 5 MG
     Route: 065
     Dates: start: 201702
  2. TEMOZOLOMIDE. [Suspect]
     Active Substance: TEMOZOLOMIDE
     Indication: NEUROENDOCRINE TUMOUR
     Dosage: UNK
     Route: 065
     Dates: start: 201609
  3. ETOPOSIDE. [Suspect]
     Active Substance: ETOPOSIDE
     Indication: NEUROENDOCRINE TUMOUR
     Dosage: UNK COMPLETED 4 CYCLES ON 13 JUL 2015
     Route: 065
     Dates: start: 20150504
  4. SUNITINIB [Concomitant]
     Active Substance: SUNITINIB
     Indication: NEUROENDOCRINE TUMOUR
     Dosage: 37.5 MG
     Route: 065
  5. CAPECITABINE. [Suspect]
     Active Substance: CAPECITABINE
     Indication: NEUROENDOCRINE TUMOUR
     Dosage: UNK
     Route: 065
     Dates: start: 201609
  6. TAMOXIFEN [Suspect]
     Active Substance: TAMOXIFEN
     Indication: NEUROENDOCRINE TUMOUR
     Route: 065
  7. CISPLATIN. [Suspect]
     Active Substance: CISPLATIN
     Indication: NEUROENDOCRINE TUMOUR
     Dosage: UNK UNK COMPLETED 4 CYCLES ON 13 JUL 2015
     Route: 065
     Dates: start: 20150504
  8. EVEROLIMUS. [Suspect]
     Active Substance: EVEROLIMUS
     Dosage: 10 MG
     Route: 065

REACTIONS (3)
  - Disease progression [Unknown]
  - Hepatic lesion [Unknown]
  - Metastases to lung [Unknown]

NARRATIVE: CASE EVENT DATE: 201702
